FAERS Safety Report 25873123 (Version 2)
Quarter: 2025Q4

REPORT INFORMATION
  Report Type: Report from Study
  Country: CA (occurrence: CA)
  Receive Date: 20251002
  Receipt Date: 20251111
  Transmission Date: 20260118
  Serious: Yes (Other)
  Sender: PFIZER
  Company Number: CA-PFIZER INC-202500195407

PATIENT
  Age: 39 Year
  Sex: Female

DRUGS (1)
  1. ADALIMUMAB [Suspect]
     Active Substance: ADALIMUMAB
     Indication: Crohn^s disease
     Dosage: 40 MG, WEEKLY (1 EVERY 1 WEEKS)
     Route: 058

REACTIONS (4)
  - Intentional dose omission [Recovering/Resolving]
  - Lower respiratory tract infection [Recovering/Resolving]
  - Off label use [Recovering/Resolving]
  - Product dose omission issue [Recovering/Resolving]
